FAERS Safety Report 17308622 (Version 1)
Quarter: 2020Q1

REPORT INFORMATION
  Report Type: Spontaneous
  Country: NL (occurrence: NL)
  Receive Date: 20200123
  Receipt Date: 20200123
  Transmission Date: 20200409
  Serious: Yes (Hospitalization, Other)
  Sender: FDA-Public Use
  Company Number: NL-PFIZER INC-2020026917

PATIENT
  Age: 63 Year
  Sex: Female

DRUGS (16)
  1. AUGMENTIN [Concomitant]
     Active Substance: AMOXICILLIN\CLAVULANATE POTASSIUM
     Dosage: UNK (1000/200 MG)
     Route: 042
     Dates: start: 20180614, end: 20180617
  2. AMOXICILLIN. [Concomitant]
     Active Substance: AMOXICILLIN
     Dosage: 1000 MG, UNK (4 TIMES)
     Route: 042
     Dates: start: 20180502, end: 20180506
  3. AUGMENTIN [Concomitant]
     Active Substance: AMOXICILLIN\CLAVULANATE POTASSIUM
     Dosage: UNK (1000/200 MG)
     Route: 042
     Dates: start: 20180502, end: 20180502
  4. CARBOPLATIN. [Suspect]
     Active Substance: CARBOPLATIN
     Indication: NON-SMALL CELL LUNG CANCER
     Dosage: 760 MG, UNK (ONCE, MOST RECENT DOSE OF CARBOPLATIN WAS RECEIVED ON 26/APR/2016)
     Route: 042
     Dates: start: 20180315
  5. CIPROFLOXACINE [CIPROFLOXACIN] [Concomitant]
     Active Substance: CIPROFLOXACIN
     Dosage: 300 MG, UNK (2 TIMES)
     Route: 048
     Dates: start: 20180514, end: 20180522
  6. CLOTRIMAZOLE. [Concomitant]
     Active Substance: CLOTRIMAZOLE
     Dosage: 9000 MG, 1X/DAY
     Dates: start: 20180620
  7. AUGMENTIN [Concomitant]
     Active Substance: AMOXICILLIN\CLAVULANATE POTASSIUM
     Dosage: UNK
     Route: 042
     Dates: start: 20180602
  8. CIPROFLOXACINE [CIPROFLOXACIN] [Concomitant]
     Active Substance: CIPROFLOXACIN
     Dosage: 300 MG, UNK (2 TIMES)
     Route: 048
     Dates: start: 20180507, end: 20180510
  9. BEVACIZUMAB. [Suspect]
     Active Substance: BEVACIZUMAB
     Indication: NON-SMALL CELL LUNG CANCER
     Dosage: 750 MG, UNK (ONCE DATE OF MOST RECENT DOSE OF BEVACIZUMAB WAS: 26/APR/2018 )
     Route: 042
     Dates: start: 20180315
  10. PIPERACILLIN/TAZOBACTAM [Concomitant]
     Active Substance: PIPERACILLIN SODIUM\TAZOBACTAM SODIUM
     Dosage: 3 UNK, 1X/DAY (4000/500 MG)
     Route: 042
     Dates: start: 20180617, end: 20180620
  11. CIPROFLOXACINE [CIPROFLOXACIN] [Concomitant]
     Active Substance: CIPROFLOXACIN
     Dosage: 300 MG, UNK (1 TIME)
     Route: 042
     Dates: start: 20180514, end: 20180514
  12. AMOXICILLIN. [Concomitant]
     Active Substance: AMOXICILLIN
     Dosage: 750 MG, UNK (3 TIMES)
     Route: 048
     Dates: start: 20180506, end: 20180507
  13. AMOXICILLIN. [Concomitant]
     Active Substance: AMOXICILLIN
     Dosage: 1000 MG, UNK (1 TIME)
     Route: 042
     Dates: start: 20180514, end: 20180514
  14. AUGMENTIN [Concomitant]
     Active Substance: AMOXICILLIN\CLAVULANATE POTASSIUM
     Dosage: UNK (1000/200 MG)
     Route: 042
     Dates: start: 20180530, end: 20180530
  15. AMOXICILLIN. [Concomitant]
     Active Substance: AMOXICILLIN
     Dosage: 500 MG, UNK (4 TIMES)
     Route: 048
     Dates: start: 20180514, end: 20180522
  16. PACLITAXEL. [Suspect]
     Active Substance: PACLITAXEL
     Indication: NON-SMALL CELL LUNG CANCER
     Dosage: 308 MG, UNK (ONCE, MOST RECENT DOSE OF PACLITAXEL WAS ADMINISTRERED ON 26/APR/2018)
     Route: 042
     Dates: start: 20180315

REACTIONS (1)
  - Pneumonia [Recovered/Resolved]

NARRATIVE: CASE EVENT DATE: 20180501
